FAERS Safety Report 15831179 (Version 1)
Quarter: 2019Q1

REPORT INFORMATION
  Report Type: Spontaneous
  Country: ES (occurrence: ES)
  Receive Date: 20190116
  Receipt Date: 20190116
  Transmission Date: 20190417
  Serious: Yes (Hospitalization)
  Sender: FDA-Public Use
  Company Number: ES-IPSEN BIOPHARMACEUTICALS, INC.-2019-00680

PATIENT
  Age: 78 Year
  Sex: Male
  Weight: 72.9 kg

DRUGS (17)
  1. FOLINIC ACID [Suspect]
     Active Substance: LEUCOVORIN
     Indication: COLORECTAL CANCER
     Dosage: 732 MG
     Route: 042
     Dates: start: 20180724, end: 20180724
  2. AFLIBERCEPT [Suspect]
     Active Substance: AFLIBERCEPT
     Indication: COLORECTAL CANCER
     Dosage: 291.6 MG
     Route: 042
     Dates: start: 20180724, end: 20180724
  3. AFLIBERCEPT [Suspect]
     Active Substance: AFLIBERCEPT
     Dosage: 291.6 MG
     Route: 042
     Dates: start: 20181218
  4. ENALAPRIL [Concomitant]
     Active Substance: ENALAPRIL
     Dates: start: 2003
  5. FOLINIC ACID [Suspect]
     Active Substance: LEUCOVORIN
     Dosage: 732 MG
     Route: 042
     Dates: start: 20181218, end: 20181218
  6. METFORMIN HYDROCHLORIDE. [Concomitant]
     Active Substance: METFORMIN HYDROCHLORIDE
     Dates: start: 2014
  7. ONIVYDE [Suspect]
     Active Substance: IRINOTECAN HYDROCHLORIDE
     Indication: OFF LABEL USE
     Dosage: 197.64 MG,
     Route: 042
     Dates: start: 20181218, end: 20181218
  8. FLUOROURACIL. [Suspect]
     Active Substance: FLUOROURACIL
     Dosage: 439.2 MG
     Route: 042
     Dates: start: 20181217, end: 20181217
  9. AMLODIPINE [Concomitant]
     Active Substance: AMLODIPINE BESYLATE
     Dates: start: 20180811
  10. OMEPRAZOLE. [Concomitant]
     Active Substance: OMEPRAZOLE
     Dates: start: 2014
  11. FLUOROURACIL. [Suspect]
     Active Substance: FLUOROURACIL
     Indication: COLORECTAL CANCER
     Dosage: 2635.2 MG,
     Route: 042
     Dates: start: 20180724, end: 20180724
  12. FLUOROURACIL. [Suspect]
     Active Substance: FLUOROURACIL
     Dosage: 2635.2 MG
     Route: 042
     Dates: start: 20181220, end: 20181220
  13. BISOPROLOL [Concomitant]
     Active Substance: BISOPROLOL
     Dates: start: 2014
  14. ONIVYDE [Suspect]
     Active Substance: IRINOTECAN HYDROCHLORIDE
     Indication: COLORECTAL CANCER
     Dosage: 197.64 MG
     Route: 042
     Dates: start: 20180724, end: 20180724
  15. FLUOROURACIL. [Suspect]
     Active Substance: FLUOROURACIL
     Dosage: 439.2 MG
     Route: 042
     Dates: start: 20180724, end: 20180724
  16. BROMHEXINE [Concomitant]
     Active Substance: BROMHEXINE
     Dates: start: 1993
  17. ADIRO (ACETYLSALICYLIC ACID) [Concomitant]
     Dates: start: 2014

REACTIONS (1)
  - Pulmonary embolism [Recovered/Resolved]

NARRATIVE: CASE EVENT DATE: 20181224
